FAERS Safety Report 12611306 (Version 3)
Quarter: 2016Q4

REPORT INFORMATION
  Report Type: Spontaneous
  Country: US (occurrence: US)
  Receive Date: 20160801
  Receipt Date: 20161021
  Transmission Date: 20170207
  Serious: Yes (Other)
  Sender: FDA-Public Use
  Company Number: US-PROCTER_AND_GAMBLE-GS16094310

PATIENT
  Age: 51 Year
  Sex: Female
  Weight: 102.4 kg

DRUGS (6)
  1. ESTRADIOL. [Concomitant]
     Active Substance: ESTRADIOL
     Dosage: 1 MG, 1 /DAY
  2. SYNTHROID [Concomitant]
     Active Substance: LEVOTHYROXINE SODIUM
     Dosage: 88 ?G, 1 /DAY
  3. CREST PRO-HEALTH HD [Suspect]
     Active Substance: STANNOUS FLUORIDE
     Indication: DENTAL DISORDER PROPHYLAXIS
     Dosage: A SMALL STRIP DOWN BRUSH HEAD, 1-2 TIMES A DAY; SQUIRT ON TOOTHBRUSH, MORNING 1X DAILY
     Route: 002
     Dates: start: 20160703, end: 20160722
  4. NEXIUM [Concomitant]
     Active Substance: ESOMEPRAZOLE MAGNESIUM
     Dosage: 20 MG, AS NEEDED
  5. REGULAR TOOTHPASTE [Concomitant]
  6. PROZAC [Concomitant]
     Active Substance: FLUOXETINE HYDROCHLORIDE
     Dosage: 40 MG, 1 /DAY

REACTIONS (13)
  - Oral pain [Recovered/Resolved]
  - Glossodynia [Recovered/Resolved]
  - Oral discomfort [Recovered/Resolved]
  - Pharyngeal erythema [Recovered/Resolved]
  - Physical examination abnormal [Recovered/Resolved]
  - Local swelling [Recovered/Resolved]
  - Chemical burn of gastrointestinal tract [Recovered/Resolved]
  - Lymphadenopathy [Recovered/Resolved]
  - Gingival pain [Recovered/Resolved]
  - Pharyngitis [Recovered/Resolved]
  - Chemical burn of respiratory tract [Recovered/Resolved]
  - Pharyngeal oedema [Recovered/Resolved]
  - Oropharyngeal pain [Recovered/Resolved]

NARRATIVE: CASE EVENT DATE: 201607
